FAERS Safety Report 15639024 (Version 1)
Quarter: 2018Q4

REPORT INFORMATION
  Report Type: Spontaneous
  Country: US (occurrence: US)
  Receive Date: 20181120
  Receipt Date: 20181120
  Transmission Date: 20190205
  Serious: No
  Sender: FDA-Public Use
  Company Number: US-JNJFOC-20180303448

PATIENT
  Sex: Female
  Weight: 53 kg

DRUGS (10)
  1. BENZYLPENICILLIN [Concomitant]
     Active Substance: PENICILLIN G
  2. BACTRIM [Concomitant]
     Active Substance: SULFAMETHOXAZOLE\TRIMETHOPRIM
  3. LANTUS [Concomitant]
     Active Substance: INSULIN GLARGINE
  4. IMBRUVICA [Suspect]
     Active Substance: IBRUTINIB
     Indication: GRAFT VERSUS HOST DISEASE
     Route: 048
     Dates: start: 20170412
  5. VALTREX [Concomitant]
     Active Substance: VALACYCLOVIR HYDROCHLORIDE
  6. FOLIC ACID. [Concomitant]
     Active Substance: FOLIC ACID
  7. MAGNESIUM [Concomitant]
     Active Substance: MAGNESIUM
  8. TACROLIMUS. [Concomitant]
     Active Substance: TACROLIMUS
  9. NOVOLOG [Concomitant]
     Active Substance: INSULIN ASPART
  10. PREDNISONE. [Concomitant]
     Active Substance: PREDNISONE

REACTIONS (1)
  - Alopecia [Not Recovered/Not Resolved]

NARRATIVE: CASE EVENT DATE: 2017
